FAERS Safety Report 7960170-5 (Version None)
Quarter: 2011Q4

REPORT INFORMATION
  Report Type: 
  Country: None (occurrence: None)
  Receive Date: 20111206
  Receipt Date: 20111201
  Transmission Date: 20120403
  Serious: Yes (Death, Other)
  Sender: FDA-Public Use
  Company Number: PHHY2011BR80719

PATIENT
  Sex: Female

DRUGS (3)
  1. FORMOTEROL FUMARATE [Suspect]
     Indication: EMPHYSEMA
     Dosage: 1 DF, QD
  2. SPIRIVA [Concomitant]
     Indication: EMPHYSEMA
     Dosage: 18 UG, QD
  3. RADIATION THERAPY [Concomitant]

REACTIONS (6)
  - CEREBRAL ISCHAEMIA [None]
  - DEMENTIA ALZHEIMER'S TYPE [None]
  - NERVOUS SYSTEM DISORDER [None]
  - HYPERSENSITIVITY [None]
  - CARDIAC FAILURE [None]
  - RESPIRATORY FAILURE [None]
